FAERS Safety Report 4868159-X (Version None)
Quarter: 2005Q4

REPORT INFORMATION
  Report Type: 
  Country: None (occurrence: None)
  Receive Date: 20051223
  Receipt Date: 20051215
  Transmission Date: 20060501
  Serious: Yes (Hospitalization)
  Sender: FDA-Public Use
  Company Number: 2005S1011935

PATIENT
  Age: 46 Year
  Sex: Male
  Weight: 108.8633 kg

DRUGS (2)
  1. FUROSEMIDE TABLETS, USP (40 MG) [Suspect]
     Indication: OEDEMA
     Dosage: 40 MG; QD; ORAL
     Route: 048
     Dates: start: 20041201
  2. METOLAZONE [Suspect]
     Indication: OEDEMA
     Dosage: 5 MG; QD; ORAL
     Route: 048
     Dates: start: 20051109

REACTIONS (7)
  - BLOOD POTASSIUM DECREASED [None]
  - CELLULITIS [None]
  - CHEST DISCOMFORT [None]
  - FATIGUE [None]
  - HEART RATE IRREGULAR [None]
  - PRURITUS [None]
  - SKIN BURNING SENSATION [None]
